FAERS Safety Report 19829431 (Version 1)
Quarter: 2021Q3

REPORT INFORMATION
  Report Type: Spontaneous
  Country: US (occurrence: US)
  Receive Date: 20210911
  Receipt Date: 20210911
  Transmission Date: 20211014
  Serious: Yes (Hospitalization)
  Sender: FDA-Public Use
  Company Number: None

PATIENT
  Sex: Female
  Weight: 80.5 kg

DRUGS (7)
  1. CYCLOPHOSPHAMIDE. [Suspect]
     Active Substance: CYCLOPHOSPHAMIDE
     Dates: end: 20210824
  2. METHOTREXATE. [Concomitant]
     Active Substance: METHOTREXATE
     Dates: end: 20210824
  3. RITUXIMAB (MOAB C2B8 ANTI CD20, CHIMERIC) [Suspect]
     Active Substance: RITUXIMAB
     Dates: end: 20210810
  4. ONCASPAR [Concomitant]
     Active Substance: PEGASPARGASE
     Dates: end: 20210817
  5. VINCRISTINE SULFATE. [Concomitant]
     Active Substance: VINCRISTINE SULFATE
     Dates: end: 20210824
  6. MERCAPTOPURINE. [Concomitant]
     Active Substance: MERCAPTOPURINE
     Dates: end: 20210816
  7. CYTARABINE. [Concomitant]
     Active Substance: CYTARABINE
     Dates: end: 20210813

REACTIONS (4)
  - Febrile neutropenia [None]
  - Oesophageal candidiasis [None]
  - Oropharyngeal pain [None]
  - Odynophagia [None]

NARRATIVE: CASE EVENT DATE: 20210825
